FAERS Safety Report 6837396-7 (Version None)
Quarter: 2010Q3

REPORT INFORMATION
  Report Type: 
  Country: None (occurrence: None)
  Receive Date: 20100713
  Receipt Date: 20070511
  Transmission Date: 20110219
  Serious: No
  Sender: FDA-Public Use
  Company Number: US-PFIZER INC-2007039128

PATIENT
  Sex: Male
  Weight: 84 kg

DRUGS (13)
  1. CHANTIX [Suspect]
     Indication: SMOKING CESSATION THERAPY
     Route: 048
     Dates: start: 20070401
  2. ALL OTHER THERAPEUTIC PRODUCTS [Concomitant]
  3. ZOLOFT [Concomitant]
  4. PROVIGIL [Concomitant]
  5. NEXIUM [Concomitant]
  6. ALPRAZOLAM [Concomitant]
  7. SERTRALINE HCL [Concomitant]
  8. ALL OTHER THERAPEUTIC PRODUCTS [Concomitant]
  9. ACETYLSALICYLIC ACID [Concomitant]
  10. ZINC [Concomitant]
  11. VITAMIN E [Concomitant]
  12. FENOFIBRATE [Concomitant]
  13. CYMBALTA [Concomitant]

REACTIONS (2)
  - DRUG INEFFECTIVE [None]
  - INTENTIONAL DRUG MISUSE [None]
